FAERS Safety Report 25995027 (Version 3)
Quarter: 2025Q4

REPORT INFORMATION
  Report Type: Spontaneous
  Country: BR (occurrence: BR)
  Receive Date: 20251104
  Receipt Date: 20251111
  Transmission Date: 20260117
  Serious: Yes (Other)
  Sender: MYLAN
  Company Number: BR-MYLANLABS-2025M1091154

PATIENT
  Sex: Female
  Weight: 71 kg

DRUGS (4)
  1. VENLAFAXINE HYDROCHLORIDE [Suspect]
     Active Substance: VENLAFAXINE HYDROCHLORIDE
     Indication: Anxiety
     Dosage: UNK, AM (ONE AND A HALF CAPSULES ONCE A DAY IN THE MORNING)
     Dates: start: 2005
  2. VENLAFAXINE HYDROCHLORIDE [Suspect]
     Active Substance: VENLAFAXINE HYDROCHLORIDE
     Indication: Depression
     Dosage: UNK, AM (ONE AND A HALF CAPSULES ONCE A DAY IN THE MORNING)
  3. VENLAFAXINE [Suspect]
     Active Substance: VENLAFAXINE HYDROCHLORIDE
     Indication: Anxiety
     Dosage: 1.5 DOSAGE FORM, QD (ONCE DAILY)
  4. VENLAFAXINE [Suspect]
     Active Substance: VENLAFAXINE HYDROCHLORIDE
     Indication: Depression

REACTIONS (25)
  - Depression [Recovered/Resolved]
  - Drug dependence [Not Recovered/Not Resolved]
  - Stupor [Recovered/Resolved]
  - Eye movement disorder [Recovered/Resolved]
  - Pain [Recovered/Resolved]
  - Fear [Recovered/Resolved]
  - Feeling hot [Recovered/Resolved]
  - Chest pain [Recovered/Resolved]
  - Back pain [Recovered/Resolved]
  - General physical condition abnormal [Not Recovered/Not Resolved]
  - Anxiety [Recovered/Resolved]
  - Disturbance in attention [Unknown]
  - Restlessness [Unknown]
  - Retching [Recovered/Resolved]
  - Panic disorder [Recovered/Resolved]
  - Nausea [Recovered/Resolved]
  - Diarrhoea [Recovered/Resolved]
  - Hypotension [Recovered/Resolved]
  - Hypertension [Not Recovered/Not Resolved]
  - Heart rate increased [Recovered/Resolved]
  - Dizziness [Recovered/Resolved]
  - Dyspnoea [Not Recovered/Not Resolved]
  - Asthenia [Recovered/Resolved]
  - Tremor [Recovered/Resolved]
  - Wrong technique in product usage process [Not Recovered/Not Resolved]

NARRATIVE: CASE EVENT DATE: 20050101
